FAERS Safety Report 4940886-5 (Version None)
Quarter: 2006Q1

REPORT INFORMATION
  Report Type: 
  Country: None (occurrence: None)
  Receive Date: 20060313
  Receipt Date: 20060228
  Transmission Date: 20060701
  Serious: Yes (Hospitalization)
  Sender: FDA-Public Use
  Company Number: AT-JNJFOC-20051106047

PATIENT
  Age: 6 Week
  Sex: Male

DRUGS (4)
  1. TYLENOL (CAPLET) [Suspect]
  2. TYLENOL (CAPLET) [Suspect]
     Indication: IRRITABILITY
  3. TEMPRA [Suspect]
  4. INFANT'S FORMULA [Concomitant]

REACTIONS (3)
  - DRUG ADMINISTRATION ERROR [None]
  - HEPATOTOXICITY [None]
  - OVERDOSE [None]
